FAERS Safety Report 23425044 (Version 10)
Quarter: 2025Q4

REPORT INFORMATION
  Report Type: Report from Study
  Country: BR (occurrence: BR)
  Receive Date: 20240121
  Receipt Date: 20251027
  Transmission Date: 20260118
  Serious: Yes (Hospitalization)
  Sender: BIOGEN
  Company Number: BR-BIOGEN-2024BI01245630

PATIENT
  Age: 36 Year
  Sex: Male
  Weight: 57 kg

DRUGS (7)
  1. TYSABRI [Suspect]
     Active Substance: NATALIZUMAB
     Indication: Multiple sclerosis
     Dates: start: 2015
  2. TYSABRI [Suspect]
     Active Substance: NATALIZUMAB
     Dates: start: 20160101
  3. TYSABRI [Suspect]
     Active Substance: NATALIZUMAB
  4. TYSABRI [Suspect]
     Active Substance: NATALIZUMAB
  5. TYSABRI [Suspect]
     Active Substance: NATALIZUMAB
  6. TYSABRI [Suspect]
     Active Substance: NATALIZUMAB
     Dosage: DOSAGE TEXT:MANUFACTURED IN JULY 2024
  7. PREDNISONE [Concomitant]
     Active Substance: PREDNISONE
     Indication: Product used for unknown indication

REACTIONS (6)
  - Adrenal gland cancer metastatic [Unknown]
  - Balance disorder [Unknown]
  - Off label use [Not Recovered/Not Resolved]
  - Contrast media allergy [Unknown]
  - Fall [Recovered/Resolved]
  - Cervical vertebral fracture [Recovered/Resolved]

NARRATIVE: CASE EVENT DATE: 20230105
